FAERS Safety Report 10461268 (Version 1)
Quarter: 2014Q3

REPORT INFORMATION
  Report Type: Spontaneous
  Country: VE (occurrence: VE)
  Receive Date: 20140918
  Receipt Date: 20140918
  Transmission Date: 20150326
  Serious: Yes (Death)
  Sender: FDA-Public Use
  Company Number: PHHY2014VE120584

PATIENT
  Age: 18 Year
  Sex: Female

DRUGS (2)
  1. TRILEPTAL [Suspect]
     Active Substance: OXCARBAZEPINE
     Indication: CONVULSION
     Dosage: 900 MG, DAILY
     Route: 048
  2. EXJADE [Suspect]
     Active Substance: DEFERASIROX
     Indication: SERUM FERRITIN INCREASED
     Dosage: UNK
     Dates: start: 201407

REACTIONS (3)
  - Death [Fatal]
  - Serum ferritin increased [Unknown]
  - Drug ineffective [Unknown]

NARRATIVE: CASE EVENT DATE: 20140910
